FAERS Safety Report 4971202-0 (Version None)
Quarter: 2006Q1

REPORT INFORMATION
  Report Type: 
  Country: None (occurrence: None)
  Receive Date: 20060216
  Receipt Date: 20040610
  Transmission Date: 20060701
  Serious: No
  Sender: FDA-Public Use
  Company Number: 2004IM000496

PATIENT
  Age: 66 Year
  Sex: Female
  Weight: 35 kg

DRUGS (3)
  1. INTERFERON GAMMA-1B [Suspect]
     Indication: OVARIAN CANCER
     Dosage: 100 UG, TIW, SUBCUTANEOUS
     Route: 058
     Dates: start: 20030314, end: 20030402
  2. CARBOPLATIN [Suspect]
     Indication: OVARIAN CANCER
     Dosage: 672 MG, Q3W, INTRAVENOUS
     Route: 042
     Dates: start: 20030314, end: 20030314
  3. PACLITAXEL [Suspect]
     Indication: OVARIAN CANCER
     Dosage: 228 MG, Q3W, INTRAVENOUS
     Route: 042
     Dates: start: 20030314, end: 20030314

REACTIONS (1)
  - ANAEMIA [None]
